FAERS Safety Report 5296110-X (Version None)
Quarter: 2007Q2

REPORT INFORMATION
  Report Type: 
  Country: None (occurrence: None)
  Receive Date: 20070406
  Receipt Date: 20070322
  Transmission Date: 20071010
  Serious: Yes (Hospitalization)
  Sender: FDA-Public Use
  Company Number: DSA_29490_2007

PATIENT
  Age: 84 Year
  Sex: Female

DRUGS (8)
  1. BI-TILDIEM [Suspect]
     Dosage: 120 MG Q DAY PO
     Route: 048
     Dates: end: 20061107
  2. INIPOMP [Suspect]
     Dosage: 40 MG Q DAY PO
     Route: 048
     Dates: end: 20061107
  3. LASIX [Suspect]
     Dosage: 20 MG Q DAY PO
     Route: 048
     Dates: end: 20061107
  4. PROZAC [Suspect]
     Dosage: 20 MG Q DAY PO
     Route: 048
     Dates: end: 20061107
  5. SINEMET [Suspect]
     Indication: PARKINSON'S DISEASE
     Dosage: 1000 MG Q DAY PO
     Route: 048
     Dates: end: 20061107
  6. DIGOXIN [Concomitant]
  7. PREVISCAN [Concomitant]
  8. DIFFU K [Concomitant]

REACTIONS (3)
  - ABNORMAL BEHAVIOUR [None]
  - FALL [None]
  - ORTHOSTATIC HYPOTENSION [None]
